FAERS Safety Report 9806089 (Version 2)
Quarter: 2014Q1

REPORT INFORMATION
  Report Type: Report from Study
  Country: MX (occurrence: MX)
  Receive Date: 20140109
  Receipt Date: 20140116
  Transmission Date: 20141002
  Serious: Yes (Hospitalization)
  Sender: FDA-Public Use
  Company Number: PHHO2014MX000508

PATIENT
  Sex: 0

DRUGS (11)
  1. VIDAXIL [Suspect]
     Indication: CARDIAC FAILURE
     Dosage: 0.250 QD
     Route: 048
     Dates: start: 20110829, end: 20131221
  2. METOPROLOL [Suspect]
     Indication: CARDIAC FAILURE
     Dosage: 25 MG, BID
     Route: 048
     Dates: start: 20110829, end: 20131221
  3. BLINDED ENALAPRIL [Suspect]
     Indication: CARDIAC FAILURE CHRONIC
     Dosage: DOUBLE BLIND
     Route: 048
     Dates: start: 20121023, end: 20131221
  4. BLINDED LCZ696 [Suspect]
     Indication: CARDIAC FAILURE CHRONIC
     Dosage: DOUBLE BLIND
     Route: 048
     Dates: start: 20121023, end: 20131221
  5. BLINDED NO TREATMENT RECEIVED [Suspect]
     Indication: CARDIAC FAILURE CHRONIC
     Dosage: DOUBLE BLIND
     Route: 048
     Dates: start: 20121023, end: 20131221
  6. FUROSEMIDE [Concomitant]
     Indication: CARDIAC FAILURE
     Dosage: 40 MG, QD
     Route: 048
     Dates: start: 20110829
  7. NPH-INSULIN [Concomitant]
     Indication: DIABETES MELLITUS
     Dosage: 25/12 IU, UNK
     Dates: start: 20010829
  8. PRAVASTATIN [Concomitant]
     Indication: PROPHYLAXIS
     Dosage: 20 MG, QD
     Route: 048
     Dates: start: 20110829
  9. ASPIRIN [Concomitant]
     Indication: PROPHYLAXIS
     Dosage: 150 MG, QD
     Route: 048
     Dates: start: 20110829
  10. ESPIRONOLACTON [Concomitant]
     Indication: CARDIAC FAILURE
     Dosage: 25 MG, QD
     Route: 048
     Dates: start: 20110829, end: 20131221
  11. ALLOPURINOL [Concomitant]
     Indication: CARDIAC FAILURE
     Dosage: 300 MG, QD
     Route: 048
     Dates: start: 20121023

REACTIONS (4)
  - Hypotension [Recovered/Resolved]
  - Bradycardia [Recovered/Resolved]
  - Ventricular extrasystoles [Recovering/Resolving]
  - Cardiac failure [Recovered/Resolved]
